FAERS Safety Report 24767617 (Version 1)
Quarter: 2024Q4

REPORT INFORMATION
  Report Type: Spontaneous
  Country: US (occurrence: None)
  Receive Date: 20241222
  Receipt Date: 20241222
  Transmission Date: 20250115
  Serious: Yes (Hospitalization, Disabling, Other)
  Sender: Public
  Company Number: None

PATIENT
  Age: 34 Year
  Sex: Male
  Weight: 76 kg

DRUGS (2)
  1. CELEXA [Suspect]
     Active Substance: CITALOPRAM HYDROBROMIDE
  2. Vitamin D, 2500 I.E. [Concomitant]

REACTIONS (2)
  - Sexual dysfunction [None]
  - Small fibre neuropathy [None]

NARRATIVE: CASE EVENT DATE: 20060525
